FAERS Safety Report 8552234-2 (Version None)
Quarter: 2012Q3

REPORT INFORMATION
  Report Type: 
  Country: None (occurrence: None)
  Receive Date: 20120731
  Receipt Date: 20120704
  Transmission Date: 20120928
  Serious: Yes (Other)
  Sender: FDA-Public Use
  Company Number: US-BAYER-2012-063412

PATIENT
  Age: 57 Year
  Sex: Female
  Weight: 57.596 kg

DRUGS (3)
  1. HUMIRA [Concomitant]
     Dosage: 40 MG, UNK
  2. GADAVIST [Suspect]
     Indication: NUCLEAR MAGNETIC RESONANCE IMAGING BRAIN
     Dosage: 7.5 ML, ONCE
     Dates: start: 20120619, end: 20120619
  3. METOPROLOL TARTRATE [Concomitant]
     Dosage: 50 MG, BID

REACTIONS (7)
  - FEELING ABNORMAL [None]
  - UNEVALUABLE EVENT [None]
  - RETCHING [None]
  - MOBILITY DECREASED [None]
  - NAUSEA [None]
  - HYPERHIDROSIS [None]
  - FEELING HOT [None]
